FAERS Safety Report 17412281 (Version 1)
Quarter: 2020Q1

REPORT INFORMATION
  Report Type: Spontaneous
  Country: US (occurrence: US)
  Receive Date: 20200128
  Receipt Date: 20200128
  Transmission Date: 20200409
  Serious: Yes (Disabling)
  Sender: FDA-Public Use
  Company Number: None

PATIENT
  Age: 59 Year
  Sex: Female
  Weight: 49.9 kg

DRUGS (11)
  1. ATORVASATIN [Concomitant]
  2. TYLENOL [Concomitant]
     Active Substance: ACETAMINOPHEN
  3. BENADRYL [Concomitant]
     Active Substance: DIPHENHYDRAMINE HYDROCHLORIDE
  4. N-NITRO SODIMETHYLAMINE [Concomitant]
  5. RANITIDINE 150MG TAB AMN [Suspect]
     Active Substance: RANITIDINE
     Indication: GASTROOESOPHAGEAL REFLUX DISEASE
     Dosage: ?          QUANTITY:2 PILLS PER DAY;?
     Route: 048
     Dates: end: 20191001
  6. IRON [Concomitant]
     Active Substance: IRON
  7. ACETAMI/CODEIN [Concomitant]
  8. CALCIUM [Concomitant]
     Active Substance: CALCIUM
  9. MULTI [Concomitant]
  10. COUMADIN [Concomitant]
     Active Substance: WARFARIN SODIUM
  11. VIT D [Concomitant]
     Active Substance: VITAMIN D NOS

REACTIONS (1)
  - Flatulence [None]

NARRATIVE: CASE EVENT DATE: 1997
